FAERS Safety Report 8420506-8 (Version None)
Quarter: 2012Q2

REPORT INFORMATION
  Report Type: 
  Country: None (occurrence: None)
  Receive Date: 20120608
  Receipt Date: 20120531
  Transmission Date: 20120825
  Serious: Yes (Hospitalization)
  Sender: FDA-Public Use
  Company Number: US-BIOGENIDEC-2010BI032266

PATIENT
  Age: 39 Year
  Sex: Female

DRUGS (9)
  1. TYSABRI [Suspect]
     Indication: MULTIPLE SCLEROSIS
     Route: 042
     Dates: start: 20061025
  2. DEPAKOTE [Concomitant]
     Indication: BIPOLAR DISORDER
     Dates: start: 20080101
  3. ANTIBIOTICS (NOS) [Concomitant]
     Indication: URINARY TRACT INFECTION
  4. ANTIBIOTICS (NOS) [Concomitant]
     Indication: SINUSITIS
  5. WELLBUTRIN [Concomitant]
     Indication: DEPRESSION
     Route: 048
     Dates: start: 20080101
  6. ANTIBIOTICS (NOS) [Concomitant]
     Indication: BRONCHITIS
  7. PROPOFOL [Concomitant]
     Indication: PREMEDICATION
  8. SYNTHROID [Concomitant]
     Indication: HYPOTHYROIDISM
  9. ANTIBIOTICS (NOS) [Concomitant]
     Indication: PNEUMONIA

REACTIONS (9)
  - ASTHMA [None]
  - HYPOGAMMAGLOBULINAEMIA [None]
  - CLAUSTROPHOBIA [None]
  - PANCREATITIS [None]
  - CENTRAL NERVOUS SYSTEM LESION [None]
  - PNEUMONIA [None]
  - CEREBRAL ATROPHY [None]
  - RASH [None]
  - NEUROPATHY PERIPHERAL [None]
